FAERS Safety Report 5777601-1 (Version None)
Quarter: 2008Q2

REPORT INFORMATION
  Report Type: 
  Country: None (occurrence: None)
  Receive Date: 20080618
  Receipt Date: 20080606
  Transmission Date: 20081010
  Serious: Yes (Other)
  Sender: FDA-Public Use
  Company Number: US-PFIZER INC-2008020153

PATIENT
  Sex: Female
  Weight: 73.5 kg

DRUGS (18)
  1. CHANTIX [Suspect]
     Indication: SMOKING CESSATION THERAPY
  2. PREVACID [Concomitant]
  3. EFFEXOR [Concomitant]
  4. XANAX [Concomitant]
  5. LUNESTA [Concomitant]
  6. THORAZINE [Concomitant]
  7. PALIPERIDONE [Concomitant]
  8. PRILOSEC [Concomitant]
  9. NEXIUM [Concomitant]
  10. LITHIUM CARBONATE [Concomitant]
  11. BENZATROPINE [Concomitant]
  12. LITHIUM CARBONATE [Concomitant]
  13. CENESTIN [Concomitant]
  14. TOPAMAX [Concomitant]
  15. ASPIRIN [Concomitant]
  16. GEODON [Concomitant]
  17. ESTRADIOL [Concomitant]
  18. CHLORAL HYDRATE [Concomitant]

REACTIONS (15)
  - ABASIA [None]
  - ABDOMINAL PAIN UPPER [None]
  - ABNORMAL DREAMS [None]
  - AGEUSIA [None]
  - ASTHENIA [None]
  - FEELING ABNORMAL [None]
  - FLATULENCE [None]
  - GINGIVAL DISORDER [None]
  - HEADACHE [None]
  - MALAISE [None]
  - NAUSEA [None]
  - PAIN [None]
  - RESPIRATORY THERAPY [None]
  - SENILE DEMENTIA [None]
  - WEIGHT INCREASED [None]
